FAERS Safety Report 10560418 (Version 2)
Quarter: 2014Q4

REPORT INFORMATION
  Report Type: Spontaneous
  Country: FR (occurrence: FR)
  Receive Date: 20141103
  Receipt Date: 20141112
  Transmission Date: 20150529
  Serious: Yes (Hospitalization)
  Sender: FDA-Public Use
  Company Number: FR-009507513-1410FRA014176

PATIENT
  Age: 74 Year
  Sex: Female

DRUGS (5)
  1. CARBIDOPA (+) LEVODOPA [Suspect]
     Active Substance: CARBIDOPA\LEVODOPA
     Indication: DEMENTIA WITH LEWY BODIES
     Dosage: 50 MG, QID
     Route: 048
  2. IXPRIM (ACETAMINOPHEN (+) TRAMADOL HYDROCHLORIDE) [Suspect]
     Active Substance: ACETAMINOPHEN\TRAMADOL
     Indication: PAIN
     Dosage: 2 TABLETS, 3 TIMES A DAY
     Route: 048
     Dates: start: 20131102, end: 20131104
  3. PREVISCAN [Concomitant]
     Active Substance: FLUINDIONE
     Dosage: UNK
  4. EXELON [Suspect]
     Active Substance: RIVASTIGMINE TARTRATE
     Indication: DEMENTIA WITH LEWY BODIES
     Dosage: STRENGTH: 4.6 MG/24H, TRANSDREMIC DEVICE, QD
     Route: 062
  5. DOMPERIDONE [Suspect]
     Active Substance: DOMPERIDONE
     Dosage: UNK
     Route: 048

REACTIONS (2)
  - Somnolence [Recovered/Resolved]
  - Disturbance in attention [Recovered/Resolved]

NARRATIVE: CASE EVENT DATE: 20131103
